FAERS Safety Report 25584368 (Version 1)
Quarter: 2025Q3

REPORT INFORMATION
  Report Type: Spontaneous
  Country: US (occurrence: US)
  Receive Date: 20250721
  Receipt Date: 20250721
  Transmission Date: 20251020
  Serious: No
  Sender: ZYDUS PHARM
  Company Number: US-CADILA HEALTHCARE LIMITED-US-ZYDUS-125774

PATIENT

DRUGS (1)
  1. ISOTRETINOIN [Suspect]
     Active Substance: ISOTRETINOIN
     Indication: Product used for unknown indication
     Route: 065
     Dates: start: 20250416, end: 2025

REACTIONS (4)
  - Psychiatric symptom [Unknown]
  - Agitation [Unknown]
  - Decreased interest [Unknown]
  - Epistaxis [Unknown]

NARRATIVE: CASE EVENT DATE: 20250101
